FAERS Safety Report 8027844-1 (Version None)
Quarter: 2012Q1

REPORT INFORMATION
  Report Type: 
  Country: None (occurrence: None)
  Receive Date: 20120104
  Receipt Date: 20111220
  Transmission Date: 20120608
  Serious: Yes (Hospitalization, Other)
  Sender: FDA-Public Use
  Company Number: CIP11001752

PATIENT
  Age: 68 Year
  Sex: Female

DRUGS (64)
  1. ACTONEL [Suspect]
     Dosage: 5 MG, ORAL
     Route: 048
     Dates: start: 20001128, end: 20040422
  2. PROAIR HFA (SALBUTAMOL SULFATE) [Concomitant]
  3. SPIRIVA [Concomitant]
  4. MYLANTA (ALUMINUM HYDROXIDE, MAGNESIUM HYDROXIDE) [Concomitant]
  5. VYTORIN [Concomitant]
  6. ATENOLOL [Concomitant]
  7. CLOBETASOL (CLOBETASOL) [Concomitant]
  8. ADVAIR HFA [Concomitant]
  9. FLUCONAZOLE [Concomitant]
  10. FUROSEMIDE [Concomitant]
  11. CIPRO [Concomitant]
  12. PANTENOL (DEXPANTHENOL) [Concomitant]
  13. NITROFURANTOIN [Concomitant]
  14. MISOPROSTOL [Concomitant]
  15. HUMALOG [Concomitant]
  16. PANTOPRAZOLE [Concomitant]
  17. CARISOPRODOL [Concomitant]
  18. AMOXICILLIN [Concomitant]
  19. VOLTAREN [Concomitant]
  20. ESTRADERM [Concomitant]
  21. TRETINOIN [Concomitant]
  22. OSCAL D (CALCIUM CARBONATE, COLECALCIFEROL) [Concomitant]
  23. NAPROXEN [Concomitant]
  24. CELEBREX [Concomitant]
  25. METHOCARBAMOL [Concomitant]
  26. HYOSCYAMINE (HYOSCYAMINE) [Concomitant]
  27. FERROUS SULFATE TAB [Concomitant]
  28. ONDANSETRON [Concomitant]
  29. ENSURE (NUTRIENTS NOS) [Concomitant]
  30. MUCINEX DM (DEXTROMETHORPHAN HYDROBROMIDE, GUAIFENESIN) [Concomitant]
  31. CEPHALEXIN [Concomitant]
  32. HYDROCODONE W/APAP (HYDROCODONE, PARACETAMOL) [Concomitant]
  33. VENTOLIN HFA (SALBUTAMOL SULFATE) [Concomitant]
  34. CHERATUSSIN AC (CODEINE, GUAIFENESIN) [Concomitant]
  35. TERBINAFINE HCL [Concomitant]
  36. SIMVASTATIN [Concomitant]
  37. ALDARA [Concomitant]
  38. CLARITIN [Concomitant]
  39. ACETAMINOPHEN [Concomitant]
  40. BIAXIN [Concomitant]
  41. ACIPHEX (RABEPRAZOLE SODIUIM) [Concomitant]
  42. ULTRAVATE (BETAMETHASONE DIPROPIONATE) [Concomitant]
  43. TOBRADEX [Concomitant]
  44. BETAMETHASONE [Concomitant]
  45. HYDROXYZINE [Concomitant]
  46. TORADOL [Concomitant]
  47. AZITHROMYCIN [Concomitant]
  48. POTASSIUM CHLORIDE [Concomitant]
  49. DIPHENOXYLATE W/ATROPINE SULFATE (ATROPINE SULFATE, DIPHENOXYLATE) [Concomitant]
  50. METOCLOPRAMIDE [Concomitant]
  51. HISTINEX D (HYDROCODONE BITARTRATE, PSEUDOEPHEDRINE HYDROCHLORIDE) [Concomitant]
  52. LACTULOSE [Concomitant]
  53. MULTIVITAMIN (ASCORBIC ACID, CALCIUM PANTOTHENATE, ERGOCALCIFEROL, NIC [Concomitant]
  54. SINGULAIR (MONTELUKAST SODIUIM) [Concomitant]
  55. SYMBICORT [Concomitant]
  56. COLACE (DOCUSATE SODIUM) [Concomitant]
  57. DILAUDID [Concomitant]
  58. DOXYCYCLINE [Concomitant]
  59. GENTAK (GENTAMICIN SULFATE) [Concomitant]
  60. LOVENOX [Concomitant]
  61. FRAGMIN [Concomitant]
  62. CALCIUM CARBONATE [Concomitant]
  63. ACTONEL [Suspect]
     Dosage: 35 MG ONCE WEEKLY, ORAL
     Route: 048
     Dates: start: 20040525, end: 20110523
  64. MILK OF MAGNESIA TAB [Concomitant]

REACTIONS (7)
  - FALL [None]
  - PAIN IN EXTREMITY [None]
  - FRACTURE DISPLACEMENT [None]
  - LIMB ASYMMETRY [None]
  - LIMB DEFORMITY [None]
  - FEMUR FRACTURE [None]
  - ANAEMIA POSTOPERATIVE [None]
